FAERS Safety Report 20146658 (Version 1)
Quarter: 2021Q4

REPORT INFORMATION
  Report Type: Report from Study
  Country: BR (occurrence: BR)
  Receive Date: 20211203
  Receipt Date: 20211203
  Transmission Date: 20220303
  Serious: Yes (Other)
  Sender: FDA-Public Use
  Company Number: BR-NOVARTISPH-NVSC2021BR275077

PATIENT
  Sex: Male

DRUGS (1)
  1. COSENTYX [Suspect]
     Active Substance: SECUKINUMAB
     Indication: Psoriasis
     Dosage: 300 MG (2 PENS)
     Route: 065
     Dates: start: 20211112

REACTIONS (3)
  - Immunodeficiency [Unknown]
  - Dysphonia [Not Recovered/Not Resolved]
  - Sinusitis [Recovering/Resolving]
